FAERS Safety Report 19393799 (Version 1)
Quarter: 2021Q2

REPORT INFORMATION
  Report Type: Spontaneous
  Country: US (occurrence: US)
  Receive Date: 20210608
  Receipt Date: 20210608
  Transmission Date: 20210717
  Serious: Yes (Other)
  Sender: FDA-Public Use
  Company Number: None

PATIENT
  Age: 78 Year
  Sex: Male
  Weight: 77.11 kg

DRUGS (15)
  1. GABAPENTIN. [Concomitant]
     Active Substance: GABAPENTIN
  2. METFORMIN [Concomitant]
     Active Substance: METFORMIN HYDROCHLORIDE
  3. PROSCAR [Concomitant]
     Active Substance: FINASTERIDE
  4. OXYCODONE [Concomitant]
     Active Substance: OXYCODONE
  5. VITAMIN C [Concomitant]
     Active Substance: ASCORBIC ACID
  6. FISH OIL [Concomitant]
     Active Substance: FISH OIL
  7. TAMSULOSIN [Concomitant]
     Active Substance: TAMSULOSIN
  8. FENTANYL TRANSDERMAL SYSTEM [Concomitant]
     Active Substance: FENTANYL
  9. TRAZODONE [Concomitant]
     Active Substance: TRAZODONE HYDROCHLORIDE
  10. RYTHMOL [Concomitant]
     Active Substance: PROPAFENONE HYDROCHLORIDE
  11. JARDIANCE [Concomitant]
     Active Substance: EMPAGLIFLOZIN
  12. MELATONIN [Concomitant]
     Active Substance: MELATONIN
  13. TRULICITY [Suspect]
     Active Substance: DULAGLUTIDE
     Indication: DIABETES MELLITUS
     Dosage: ?          QUANTITY:1 DF DOSAGE FORM;?
     Route: 058
     Dates: start: 20200720
  14. LIPITOR [Concomitant]
     Active Substance: ATORVASTATIN CALCIUM
  15. MAGNESIUM [Concomitant]
     Active Substance: MAGNESIUM

REACTIONS (2)
  - Decreased appetite [None]
  - Fatigue [None]

NARRATIVE: CASE EVENT DATE: 20201201
